FAERS Safety Report 25688477 (Version 1)
Quarter: 2025Q3

REPORT INFORMATION
  Report Type: Spontaneous
  Country: US (occurrence: US)
  Receive Date: 20250818
  Receipt Date: 20250818
  Transmission Date: 20251021
  Serious: Yes (Hospitalization, Other)
  Sender: UNILEVER
  Company Number: US-Unilever-2182680

PATIENT
  Age: 42 Year
  Sex: Male

DRUGS (1)
  1. DEGREE (ALUMINUM ZIRCONIUM TETRACHLOROHYDREX GLY) [Suspect]
     Active Substance: ALUMINUM ZIRCONIUM TETRACHLOROHYDREX GLY
     Dates: start: 20250705

REACTIONS (7)
  - Application site swelling [Recovered/Resolved]
  - Hypersensitivity [Recovered/Resolved]
  - Dermatitis infected [Recovered/Resolved]
  - Blister [Recovered/Resolved]
  - Application site rash [Recovered/Resolved]
  - Chest pain [Recovered/Resolved]
  - Dyspnoea [Recovered/Resolved]

NARRATIVE: CASE EVENT DATE: 20250705
